FAERS Safety Report 12616597 (Version 2)
Quarter: 2016Q3

REPORT INFORMATION
  Report Type: Spontaneous
  Country: US (occurrence: US)
  Receive Date: 20160802
  Receipt Date: 20160928
  Transmission Date: 20161109
  Serious: No
  Sender: FDA-Public Use
  Company Number: US-ASTRAZENECA-2016SE68301

PATIENT
  Age: 67 Year
  Sex: Male
  Weight: 113.4 kg

DRUGS (12)
  1. PRABAXA [Concomitant]
     Indication: ANTICOAGULANT THERAPY
     Dosage: 150.0MG UNKNOWN
     Dates: start: 201103
  2. INVAKANA [Concomitant]
     Dates: start: 201408
  3. LORTAB [Concomitant]
     Active Substance: ACETAMINOPHEN\HYDROCODONE BITARTRATE
     Dosage: 5.0MG UNKNOWN
  4. TIKOSYN [Concomitant]
     Active Substance: DOFETILIDE
     Indication: CARDIAC ASSISTANCE DEVICE USER
     Dosage: 500.0MG UNKNOWN
     Dates: start: 201112
  5. TENORMIN [Suspect]
     Active Substance: ATENOLOL
     Indication: ARRHYTHMIA
     Route: 048
     Dates: start: 201309
  6. TEMAZEPAM. [Concomitant]
     Active Substance: TEMAZEPAM
     Indication: SLEEP DISORDER
     Dosage: 30.0MG UNKNOWN
     Dates: start: 201410
  7. CYCLOBENAPRINE [Concomitant]
     Indication: PAIN
     Dosage: 10.0MG UNKNOWN
     Dates: start: 201601
  8. BYDUREON [Suspect]
     Active Substance: EXENATIDE
     Indication: TYPE 2 DIABETES MELLITUS
     Route: 058
     Dates: start: 20140715
  9. BYDUREON [Suspect]
     Active Substance: EXENATIDE
     Indication: TYPE 2 DIABETES MELLITUS
     Route: 058
     Dates: start: 201207
  10. DOXAZOSIN MESYLATE. [Concomitant]
     Active Substance: DOXAZOSIN MESYLATE
     Indication: PROSTATIC DISORDER
     Dates: start: 199911
  11. MODAFINIL. [Concomitant]
     Active Substance: MODAFINIL
     Indication: ADVERSE DRUG REACTION
     Dates: start: 201603
  12. VITAMIM D-2 [Concomitant]
     Dosage: 50000 ONCE A WEEK

REACTIONS (7)
  - Underdose [Unknown]
  - Device malfunction [Unknown]
  - Dyspnoea [Unknown]
  - Headache [Unknown]
  - Rhinorrhoea [Unknown]
  - Asthenia [Unknown]
  - Device issue [Unknown]

NARRATIVE: CASE EVENT DATE: 2014
